FAERS Safety Report 9450179 (Version 1)
Quarter: 2013Q3

REPORT INFORMATION
  Report Type: Spontaneous
  Country: US (occurrence: US)
  Receive Date: 20130809
  Receipt Date: 20130809
  Transmission Date: 20140515
  Serious: Yes (Other)
  Sender: FDA-Public Use
  Company Number: US-JNJFOC-20130800568

PATIENT
  Sex: Female
  Weight: 74.84 kg

DRUGS (1)
  1. REMICADE [Suspect]
     Indication: RHEUMATOID ARTHRITIS
     Dosage: BEGUN INFLIXIMAB IN 1999 OR 2000
     Route: 042

REACTIONS (13)
  - Myocardial infarction [Recovered/Resolved]
  - Bipolar I disorder [Not Recovered/Not Resolved]
  - Bipolar II disorder [Not Recovered/Not Resolved]
  - Bronchitis [Recovered/Resolved]
  - Cough [Not Recovered/Not Resolved]
  - Abdominal pain [Not Recovered/Not Resolved]
  - Decreased appetite [Not Recovered/Not Resolved]
  - Drug ineffective [Not Recovered/Not Resolved]
  - Vomiting [Not Recovered/Not Resolved]
  - Nausea [Not Recovered/Not Resolved]
  - Pain [Not Recovered/Not Resolved]
  - Adverse event [Not Recovered/Not Resolved]
  - Gastric disorder [Not Recovered/Not Resolved]
